FAERS Safety Report 6040909-9 (Version None)
Quarter: 2009Q1

REPORT INFORMATION
  Report Type: 
  Country: None (occurrence: None)
  Receive Date: 20090116
  Receipt Date: 20080627
  Transmission Date: 20090719
  Serious: No
  Sender: FDA-Public Use
  Company Number: US-BRISTOL-MYERS SQUIBB COMPANY-14242630

PATIENT
  Age: 67 Year
  Sex: Female
  Weight: 82 kg

DRUGS (3)
  1. ABILIFY [Suspect]
     Indication: BIPOLAR DISORDER
     Dosage: INCREASED TO 10MG JUN2007 AND DECREASED TO 2.5MG AND DISCONTINUING.
     Dates: start: 20070504
  2. LAMICTAL [Concomitant]
  3. PROZAC [Concomitant]

REACTIONS (1)
  - PARKINSONIAN REST TREMOR [None]
